FAERS Safety Report 25229920 (Version 1)
Quarter: 2025Q2

REPORT INFORMATION
  Report Type: Spontaneous
  Country: GB (occurrence: GB)
  Receive Date: 20250423
  Receipt Date: 20250423
  Transmission Date: 20250717
  Serious: Yes (Hospitalization, Other)
  Sender: MYLAN
  Company Number: None

PATIENT
  Age: 43 Year
  Sex: Female

DRUGS (8)
  1. APIXABAN [Suspect]
     Active Substance: APIXABAN
     Indication: Hip arthroplasty
     Dates: start: 20250303, end: 20250408
  2. APIXABAN [Suspect]
     Active Substance: APIXABAN
     Route: 065
     Dates: start: 20250303, end: 20250408
  3. APIXABAN [Suspect]
     Active Substance: APIXABAN
     Route: 065
     Dates: start: 20250303, end: 20250408
  4. APIXABAN [Suspect]
     Active Substance: APIXABAN
     Dates: start: 20250303, end: 20250408
  5. COCODAMOL [Concomitant]
     Active Substance: ACETAMINOPHEN\CODEINE PHOSPHATE
     Indication: Pain
  6. COCODAMOL [Concomitant]
     Active Substance: ACETAMINOPHEN\CODEINE PHOSPHATE
     Route: 065
  7. COCODAMOL [Concomitant]
     Active Substance: ACETAMINOPHEN\CODEINE PHOSPHATE
     Route: 065
  8. COCODAMOL [Concomitant]
     Active Substance: ACETAMINOPHEN\CODEINE PHOSPHATE

REACTIONS (4)
  - Anxiety [Recovered/Resolved]
  - Paranoia [Recovered/Resolved]
  - Dry mouth [Recovered/Resolved]
  - Heart rate [Recovered/Resolved]

NARRATIVE: CASE EVENT DATE: 20250410
